FAERS Safety Report 5196135-9 (Version None)
Quarter: 2006Q4

REPORT INFORMATION
  Report Type: 
  Country: None (occurrence: None)
  Receive Date: 20061222
  Receipt Date: 20061208
  Transmission Date: 20070319
  Serious: Yes (Hospitalization)
  Sender: FDA-Public Use
  Company Number: 2006RR-04867

PATIENT
  Sex: Male

DRUGS (1)
  1. CIPROFLOXACIN [Suspect]
     Dosage: 1000 MG, ORAL
     Route: 048

REACTIONS (3)
  - ALOPECIA [None]
  - BONE MARROW FAILURE [None]
  - STOMATITIS [None]
